FAERS Safety Report 6207326-X (Version None)
Quarter: 2009Q2

REPORT INFORMATION
  Report Type: 
  Country: None (occurrence: None)
  Receive Date: 20090528
  Receipt Date: 20090519
  Transmission Date: 20091009
  Serious: Yes (Death, Other)
  Sender: FDA-Public Use
  Company Number: GB-B.I. PHARMACEUTICALS,INC./RIDGEFIELD-2009-DE-03858GD

PATIENT
  Age: 63 Year
  Sex: Male

DRUGS (5)
  1. CLONIDINE [Suspect]
     Indication: NEURALGIA
     Dosage: 450MCG
     Route: 008
  2. MORPHINE [Suspect]
     Indication: NEURALGIA
     Dosage: ESCALATING DOSES
     Route: 048
  3. MORPHINE [Suspect]
     Dosage: UP TO 60 MG
     Route: 008
  4. BUPIVACAINE [Suspect]
     Indication: NEURALGIA
     Dosage: 13ML
     Route: 008
  5. GABAPENTIN [Suspect]
     Indication: NEURALGIA
     Dosage: ESCALATING DOSES

REACTIONS (2)
  - DEATH [None]
  - DRUG INEFFECTIVE [None]
